FAERS Safety Report 5379905-3 (Version None)
Quarter: 2007Q3

REPORT INFORMATION
  Report Type: 
  Country: None (occurrence: None)
  Receive Date: 20070706
  Receipt Date: 20070702
  Transmission Date: 20080115
  Serious: Yes (Hospitalization, Other)
  Sender: FDA-Public Use
  Company Number: GB-BRISTOL-MYERS SQUIBB COMPANY-13832290

PATIENT
  Age: 80 Year
  Sex: Male

DRUGS (2)
  1. BLINDED: APIXABAN [Suspect]
     Indication: ACUTE CORONARY SYNDROME
     Dates: end: 20070628
  2. BLINDED: PLACEBO [Suspect]
     Indication: ACUTE CORONARY SYNDROME
     Dates: end: 20070628

REACTIONS (4)
  - ANGINA PECTORIS [None]
  - CARDIAC FAILURE CONGESTIVE [None]
  - HAEMATURIA [None]
  - LOWER RESPIRATORY TRACT INFECTION [None]
